FAERS Safety Report 7822093-1 (Version None)
Quarter: 2011Q4

REPORT INFORMATION
  Report Type: 
  Country: None (occurrence: None)
  Receive Date: 20111018
  Receipt Date: 20111012
  Transmission Date: 20120403
  Serious: Yes (Death, Other)
  Sender: FDA-Public Use
  Company Number: PHHY2011JP91202

PATIENT

DRUGS (5)
  1. BASILIXIMAB [Suspect]
     Indication: ACUTE GRAFT VERSUS HOST DISEASE
  2. TACROLIMUS [Suspect]
     Dosage: UNK UKN, UNK
  3. METHYLPREDNISOLONE [Suspect]
     Dosage: UNK UKN, UNK
  4. MYCOPHENOLATE MOFETIL [Suspect]
     Dosage: UNK UKN, UNK
  5. BASILIXIMAB [Suspect]
     Indication: STEM CELL TRANSPLANT
     Dosage: UNK UKN, UNK

REACTIONS (5)
  - HAEMATURIA [None]
  - VIRAL HAEMORRHAGIC CYSTITIS [None]
  - GRAFT VERSUS HOST DISEASE [None]
  - CYTOMEGALOVIRUS INFECTION [None]
  - BK VIRUS INFECTION [None]
